FAERS Safety Report 11145512 (Version 2)
Quarter: 2016Q1

REPORT INFORMATION
  Report Type: Spontaneous
  Country: US (occurrence: US)
  Receive Date: 20150526
  Receipt Date: 20160224
  Transmission Date: 20160525
  Serious: Yes (Disabling, Other)
  Sender: FDA-Public Use
  Company Number: US-ASTRAZENECA-2013SE68198

PATIENT
  Age: 18917 Day
  Sex: Female
  Weight: 108.9 kg

DRUGS (36)
  1. METFORMIN [Concomitant]
     Active Substance: METFORMIN HYDROCHLORIDE
     Dates: start: 20070216
  2. PHENAZOPYRIDINE. [Concomitant]
     Active Substance: PHENAZOPYRIDINE
     Dates: start: 20090130
  3. PENICILLIN VK [Concomitant]
     Active Substance: PENICILLIN V POTASSIUM
     Dates: start: 20120822
  4. BYETTA [Suspect]
     Active Substance: EXENATIDE
     Indication: TYPE 2 DIABETES MELLITUS
     Route: 065
     Dates: start: 20080326
  5. TYLENOL [Concomitant]
     Active Substance: ACETAMINOPHEN
     Route: 065
  6. MACROBID [Concomitant]
     Active Substance: NITROFURANTOIN\NITROFURANTOIN MONOHYDRATE
     Route: 048
  7. TRAMADOL HYDROCHLORIDE. [Concomitant]
     Active Substance: TRAMADOL HYDROCHLORIDE
     Dates: start: 20110224
  8. SULINDAC. [Concomitant]
     Active Substance: SULINDAC
     Dates: start: 20110902
  9. LOSARTAN-HCTZ/HYZAAR [Concomitant]
     Dosage: 50-12.5 MG, EVERY DAY
     Route: 048
     Dates: start: 20140313
  10. BUPROPION HYDROCHLORIDE. [Concomitant]
     Active Substance: BUPROPION HYDROCHLORIDE
     Dates: start: 20150226
  11. FOSAMAX [Concomitant]
     Active Substance: ALENDRONATE SODIUM
     Route: 065
  12. DETROL [Concomitant]
     Active Substance: TOLTERODINE TARTRATE
     Dates: start: 20090918
  13. VESICARE [Concomitant]
     Active Substance: SOLIFENACIN SUCCINATE
     Dates: start: 20120718
  14. MELOXICAM. [Concomitant]
     Active Substance: MELOXICAM
     Dates: start: 20130205
  15. AMBIEN [Concomitant]
     Active Substance: ZOLPIDEM TARTRATE
     Dates: start: 20050902
  16. ZOFRAN [Concomitant]
     Active Substance: ONDANSETRON HYDROCHLORIDE
     Route: 065
  17. NAPROXEN. [Concomitant]
     Active Substance: NAPROXEN
     Dates: start: 20110328
  18. PHENTERMINE. [Concomitant]
     Active Substance: PHENTERMINE
     Dates: start: 20140219
  19. TRIAZOLAM. [Concomitant]
     Active Substance: TRIAZOLAM
     Dates: start: 20150429
  20. BYETTA [Suspect]
     Active Substance: EXENATIDE
     Indication: TYPE 2 DIABETES MELLITUS
     Route: 065
     Dates: start: 20080213
  21. NUCYNTA [Concomitant]
     Active Substance: TAPENTADOL HYDROCHLORIDE
     Dates: start: 20120919
  22. SYNTHROID [Concomitant]
     Active Substance: LEVOTHYROXINE SODIUM
     Route: 065
  23. BENICAR HCT [Concomitant]
     Active Substance: HYDROCHLOROTHIAZIDE\OLMESARTAN MEDOXOMIL
     Route: 048
  24. TRAZODONE [Concomitant]
     Active Substance: TRAZODONE HYDROCHLORIDE
     Dates: start: 20070216
  25. HYDROCODONE-APAP [Concomitant]
     Active Substance: ACETAMINOPHEN\HYDROCODONE
     Dosage: 7.5-500/15 ML
     Dates: start: 20091003
  26. TYLOX [Concomitant]
     Active Substance: ACETAMINOPHEN\OXYCODONE HYDROCHLORIDE
     Route: 048
  27. TUMS [Concomitant]
     Active Substance: CALCIUM CARBONATE
     Route: 048
  28. LUNESTA [Concomitant]
     Active Substance: ESZOPICLONE
     Dates: start: 20051026
  29. ARMOUR THYROID [Concomitant]
     Active Substance: THYROID, PORCINE
     Dates: start: 20110722
  30. GABAPENTIN. [Concomitant]
     Active Substance: GABAPENTIN
     Dates: start: 20120918
  31. CELECOXIB. [Concomitant]
     Active Substance: CELECOXIB
     Dates: start: 20150228
  32. XANAX/ALPRAZOLAM [Concomitant]
     Dates: start: 20081223
  33. BYETTA [Suspect]
     Active Substance: EXENATIDE
     Indication: TYPE 2 DIABETES MELLITUS
     Dosage: UNK
     Route: 065
     Dates: start: 200802, end: 200805
  34. TIZANIDINE HYDROCHLORIDE. [Concomitant]
     Active Substance: TIZANIDINE HYDROCHLORIDE
     Dates: start: 20110104
  35. METHYLPREDNISOLONE. [Concomitant]
     Active Substance: METHYLPREDNISOLONE
     Dates: start: 20150514
  36. CELEXA/CITALOPRAM [Concomitant]
     Dates: start: 20130221

REACTIONS (5)
  - Huerthle cell carcinoma [Unknown]
  - Thyroid mass [Unknown]
  - Papillary thyroid cancer [Unknown]
  - Goitre [Unknown]
  - Hypothyroidism [Unknown]

NARRATIVE: CASE EVENT DATE: 20080919
